FAERS Safety Report 21481781 (Version 1)
Quarter: 2022Q4

REPORT INFORMATION
  Report Type: Spontaneous
  Country: US (occurrence: US)
  Receive Date: 20221020
  Receipt Date: 20221020
  Transmission Date: 20230113
  Serious: Yes (Other)
  Sender: FDA-Public Use
  Company Number: US-ADVANZ PHARMA-202207004294

PATIENT

DRUGS (2)
  1. KAPVAY [Suspect]
     Active Substance: CLONIDINE HYDROCHLORIDE
     Indication: Product used for unknown indication
     Dosage: KAPVAY 0.1MG ER TABLET
  2. CLONIDINE [Suspect]
     Active Substance: CLONIDINE
     Dosage: UNK

REACTIONS (2)
  - Drug ineffective [Unknown]
  - Incorrect dose administered [Unknown]
